FAERS Safety Report 12111324 (Version 1)
Quarter: 2016Q1

REPORT INFORMATION
  Report Type: Spontaneous
  Country: US (occurrence: US)
  Receive Date: 20160224
  Receipt Date: 20160224
  Transmission Date: 20160526
  Serious: Yes (Other)
  Sender: FDA-Public Use
  Company Number: US-JAZZ-2015-US-009817

PATIENT
  Sex: Male

DRUGS (3)
  1. PRIALT [Suspect]
     Active Substance: ZICONOTIDE ACETATE
     Indication: PAIN
  2. PRIALT [Suspect]
     Active Substance: ZICONOTIDE ACETATE
     Indication: ANGINA PECTORIS
  3. PRIALT [Suspect]
     Active Substance: ZICONOTIDE ACETATE
     Indication: COMPLEX REGIONAL PAIN SYNDROME
     Dosage: UNK ?G, QH
     Route: 037
     Dates: start: 2011, end: 201203

REACTIONS (7)
  - Hypersensitivity [Unknown]
  - Hyperhidrosis [Unknown]
  - Suicidal ideation [Recovered/Resolved]
  - Breakthrough pain [Unknown]
  - Psychotic disorder [Recovered/Resolved]
  - Staphylococcal infection [Unknown]
  - Generalised erythema [Unknown]

NARRATIVE: CASE EVENT DATE: 2011
